FAERS Safety Report 5363870-9 (Version None)
Quarter: 2007Q2

REPORT INFORMATION
  Report Type: 
  Country: None (occurrence: None)
  Receive Date: 20070620
  Receipt Date: 20070612
  Transmission Date: 20071010
  Serious: Yes (Hospitalization)
  Sender: FDA-Public Use
  Company Number: FR-BAXTER-2007BH002515

PATIENT
  Age: 17 Year
  Sex: Female

DRUGS (3)
  1. KIOVIG [Suspect]
     Indication: CYSTITIS HAEMORRHAGIC
     Dosage: DOSE UNIT:UNKNOWN
     Route: 065
     Dates: start: 20070216, end: 20070216
  2. KIOVIG [Suspect]
     Indication: INTENTIONAL DRUG MISUSE
     Dosage: DOSE UNIT:UNKNOWN
     Route: 065
     Dates: start: 20070216, end: 20070216
  3. RED BLOOD CELLS [Concomitant]
     Dates: start: 20070216, end: 20070216

REACTIONS (3)
  - CHEST PAIN [None]
  - CHILLS [None]
  - PYREXIA [None]
